FAERS Safety Report 7630900-0 (Version None)
Quarter: 2011Q3

REPORT INFORMATION
  Report Type: 
  Country: None (occurrence: None)
  Receive Date: 20110724
  Receipt Date: 20110712
  Transmission Date: 20111222
  Serious: Yes (Other)
  Sender: FDA-Public Use
  Company Number: JP-BRISTOL-MYERS SQUIBB COMPANY-15918741

PATIENT
  Age: 66 Year
  Sex: Male

DRUGS (1)
  1. METFORMIN HCL [Suspect]
     Route: 048

REACTIONS (1)
  - LIVER DISORDER [None]
